FAERS Safety Report 10745579 (Version 1)
Quarter: 2015Q1

REPORT INFORMATION
  Report Type: Spontaneous
  Country: US (occurrence: None)
  Receive Date: 20150127
  Receipt Date: 20150127
  Transmission Date: 20150721
  Serious: Yes (Hospitalization)
  Sender: FDA-Public Use
  Company Number: None

PATIENT
  Age: 81 Year
  Sex: Male

DRUGS (22)
  1. TYLENOL [Concomitant]
     Active Substance: ACETAMINOPHEN
  2. TIMOLOL (TIMOPTIC) [Concomitant]
  3. DOCUSATE SODIUM (COLACE) [Concomitant]
  4. OMEPRAZOLE (PRILOSEC) [Concomitant]
  5. GLYBURIDE (DIABETA) [Concomitant]
  6. WARFARIN [Suspect]
     Active Substance: WARFARIN
     Indication: ATRIAL FIBRILLATION
     Dosage: 1.5 QD ORAL
     Route: 048
  7. LISINOPRIL (ZESTRIL) [Concomitant]
  8. BISACODYL (DULCOLAX) [Concomitant]
  9. DULOXETINE (CYMBALTA) [Concomitant]
  10. BRIMONIDINE TARTRATE (ALPHAGAN P OP) [Concomitant]
  11. TRIAMCINOLONE (ARISTOCORT) [Concomitant]
  12. SALINE NASAL SPRAY [Concomitant]
     Active Substance: SODIUM CHLORIDE
  13. METFORMIN (GLUCOPHAGE) [Concomitant]
  14. ASCORBIC ACID (VITAMIN C) [Concomitant]
     Active Substance: ASCORBIC ACID
  15. TRAMADOL (ULTRAM) [Concomitant]
  16. CARBAMIDE PEROXIDE (DEBROX) [Concomitant]
  17. LIDOCAINE (XYLOCAINE) [Concomitant]
  18. PROSCAR [Concomitant]
     Active Substance: FINASTERIDE
  19. FLOMAX [Concomitant]
     Active Substance: TAMSULOSIN HYDROCHLORIDE
  20. POLYETHYLENE GLYCOL (MIRALAX) [Concomitant]
  21. SERTRALINE (ZOLOFT) [Concomitant]
  22. SIMVASTATIN (ZOCOR) [Concomitant]

REACTIONS (4)
  - Anaemia [None]
  - International normalised ratio increased [None]
  - Epistaxis [None]
  - Prothrombin time prolonged [None]

NARRATIVE: CASE EVENT DATE: 20140208
